FAERS Safety Report 24836345 (Version 2)
Quarter: 2025Q1

REPORT INFORMATION
  Report Type: Spontaneous
  Country: US (occurrence: US)
  Receive Date: 20250113
  Receipt Date: 20250118
  Transmission Date: 20250408
  Serious: Yes (Life-Threatening, Hospitalization, Other)
  Sender: AUROBINDO
  Company Number: US-MLMSERVICE-20241226-PI324060-00052-1

PATIENT
  Age: 32 Year
  Sex: Male

DRUGS (1)
  1. AMOXICILLIN\CLAVULANIC ACID [Suspect]
     Active Substance: AMOXICILLIN\CLAVULANIC ACID
     Indication: Dental operation
     Route: 065

REACTIONS (4)
  - Pancreatitis necrotising [Recovering/Resolving]
  - Septic shock [Recovering/Resolving]
  - Respiratory failure [Recovering/Resolving]
  - Acute respiratory distress syndrome [Recovering/Resolving]
